FAERS Safety Report 14288886 (Version 2)
Quarter: 2017Q4

REPORT INFORMATION
  Report Type: Spontaneous
  Country: US (occurrence: US)
  Receive Date: 20171215
  Receipt Date: 20171222
  Transmission Date: 20180321
  Serious: No
  Sender: FDA-Public Use
  Company Number: US-HORIZON-PEN-0570-2017

PATIENT
  Age: 28 Year
  Sex: Male

DRUGS (1)
  1. PENNSAID [Suspect]
     Active Substance: DICLOFENAC SODIUM
     Indication: MUSCLE STRAIN
     Dosage: 2 PUMPS BID
     Dates: start: 201712

REACTIONS (2)
  - Application site rash [Unknown]
  - Off label use [Unknown]

NARRATIVE: CASE EVENT DATE: 201712
